FAERS Safety Report 5285547-0 (Version None)
Quarter: 2007Q1

REPORT INFORMATION
  Report Type: 
  Country: None (occurrence: None)
  Receive Date: 20061220
  Receipt Date: 20060227
  Transmission Date: 20070707
  Serious: Yes (Other)
  Sender: FDA-Public Use
  Company Number: 438387

PATIENT
  Age: 69 Year
  Sex: Female

DRUGS (11)
  1. TAMIFLU [Suspect]
     Indication: INFLUENZA
     Dosage: 75 MG  1 PER DAY  ORAL
     Route: 048
     Dates: start: 20060225
  2. INSULIN (INSULIN) [Concomitant]
  3. ATENOLOL [Concomitant]
  4. LISINOPRIL [Concomitant]
  5. COLACE (DOCUSATE SODIUM) [Concomitant]
  6. ASPIRIN [Concomitant]
  7. ADVICOR [Concomitant]
  8. ZETIA [Concomitant]
  9. ENBREL [Concomitant]
  10. TRILISATE (CHOLINE SALICYLATE/MAGNESIUM SALICYLATE) [Concomitant]
  11. METHOTREXATE [Concomitant]

REACTIONS (3)
  - BLOOD GLUCOSE INCREASED [None]
  - COUGH [None]
  - URINE KETONE BODY PRESENT [None]
